FAERS Safety Report 4361584-5 (Version None)
Quarter: 2004Q2

REPORT INFORMATION
  Report Type: 
  Country: None (occurrence: None)
  Receive Date: 20040521
  Receipt Date: 20040406
  Transmission Date: 20050107
  Serious: No
  Sender: FDA-Public Use
  Company Number: US-GLAXOSMITHKLINE-A0506128A

PATIENT
  Age: 59 Year
  Sex: Female

DRUGS (6)
  1. WELLBUTRIN [Suspect]
     Indication: DRUG USE FOR UNKNOWN INDICATION
     Dosage: 150MG PER DAY
     Route: 048
  2. GUAIFENESIN [Concomitant]
  3. VALIUM [Concomitant]
     Dosage: 5MG AS REQUIRED
     Route: 048
  4. KCL TAB [Concomitant]
     Dosage: 20MEQ UNKNOWN
     Route: 048
     Dates: start: 20030101
  5. LIBRAX [Concomitant]
     Indication: GASTRITIS
     Route: 048
  6. DIOVAN HCT [Concomitant]
     Indication: HYPERTENSION
     Dates: start: 20020101

REACTIONS (3)
  - CONSTIPATION [None]
  - DEPRESSION [None]
  - WEIGHT INCREASED [None]
